FAERS Safety Report 6998292-8 (Version None)
Quarter: 2010Q3

REPORT INFORMATION
  Report Type: 
  Country: None (occurrence: None)
  Receive Date: 20100920
  Receipt Date: 20100514
  Transmission Date: 20110219
  Serious: No
  Sender: FDA-Public Use
  Company Number: US-ASTRAZENECA-2010SE22175

PATIENT
  Age: 79 Year
  Sex: Female
  Weight: 68 kg

DRUGS (6)
  1. SEROQUEL XR [Suspect]
     Indication: DEPRESSION
     Route: 048
     Dates: start: 20100510
  2. SEROQUEL XR [Suspect]
     Route: 048
     Dates: start: 20100511, end: 20100512
  3. SEROQUEL XR [Suspect]
     Route: 048
     Dates: start: 20100513
  4. LITHIUM CARBONATE [Concomitant]
  5. FELODIPINE [Concomitant]
  6. HYDROCHLOROTHIAZIDE [Concomitant]

REACTIONS (2)
  - FALL [None]
  - HALLUCINATION [None]
